FAERS Safety Report 9968984 (Version 1)
Quarter: 2014Q1

REPORT INFORMATION
  Report Type: Report from Study
  Country: US (occurrence: US)
  Receive Date: 20140306
  Receipt Date: 20140306
  Transmission Date: 20141002
  Serious: No
  Sender: FDA-Public Use
  Company Number: US-ABBVIE-13P-163-1144539-00

PATIENT
  Sex: Female

DRUGS (12)
  1. HUMIRA [Suspect]
     Indication: CROHN^S DISEASE
     Dosage: LOADING DOSE
     Dates: start: 20130817
  2. HUMIRA [Suspect]
     Dates: start: 20130831
  3. HUMIRA [Suspect]
  4. HYDROCODONE [Concomitant]
     Indication: BACK PAIN
     Dosage: AS NEEDED
     Route: 048
  5. TRAMADOL [Concomitant]
     Indication: BACK PAIN
     Dosage: TAKE 1-2, AS NEEDED
     Route: 048
  6. GABAPENTIN [Concomitant]
     Indication: HYPOAESTHESIA
     Route: 048
  7. DICYLCOMINE [Concomitant]
     Indication: CROHN^S DISEASE
     Route: 048
  8. OMEPRAZOLE [Concomitant]
     Indication: DYSPEPSIA
     Route: 048
  9. FERROUS SULFATE [Concomitant]
     Indication: ANAEMIA
     Route: 048
  10. NASONEX [Concomitant]
     Indication: SINUS CONGESTION
     Dosage: EACH NARE
  11. ALBUTEROL [Concomitant]
     Indication: EMPHYSEMA
     Dosage: INHALER
     Route: 055
  12. TWO DIFFERENT EYE DROP MEDICATIONS [Concomitant]
     Indication: ULCERATIVE KERATITIS

REACTIONS (2)
  - Vitamin D decreased [Not Recovered/Not Resolved]
  - Drug dose omission [Not Recovered/Not Resolved]
